FAERS Safety Report 7828036-9 (Version None)
Quarter: 2011Q4

REPORT INFORMATION
  Report Type: 
  Country: None (occurrence: None)
  Receive Date: 20111020
  Receipt Date: 20111011
  Transmission Date: 20120403
  Serious: Yes (Other)
  Sender: FDA-Public Use
  Company Number: US-GLAXOSMITHKLINE-A0949599A

PATIENT

DRUGS (1)
  1. PROMACTA [Suspect]
     Indication: HEPATITIS C

REACTIONS (6)
  - HAEMATOLOGICAL MALIGNANCY [None]
  - THROMBOSIS [None]
  - LIVER DISORDER [None]
  - EMBOLISM [None]
  - NEOPLASM MALIGNANT [None]
  - BONE MARROW RETICULIN FIBROSIS [None]
